FAERS Safety Report 7238072-1 (Version None)
Quarter: 2011Q1

REPORT INFORMATION
  Report Type: 
  Country: None (occurrence: None)
  Receive Date: 20110121
  Receipt Date: 20110112
  Transmission Date: 20110831
  Serious: Yes (Death)
  Sender: FDA-Public Use
  Company Number: B0693161A

PATIENT
  Age: 34 Year
  Sex: Male
  Weight: 60 kg

DRUGS (13)
  1. ALFENTANIL [Concomitant]
  2. BENZYLPENICILLIN [Concomitant]
  3. AMPICILLIN SODIUM/SULBACTAM SODIUM [Concomitant]
  4. TAZOCIN [Concomitant]
  5. ATRACURIUM BESYLATE [Concomitant]
  6. CASPOFUNGIN ACETATE [Concomitant]
  7. FRAGMIN [Concomitant]
  8. FRUSEMIDE [Concomitant]
  9. PROPOFOL [Concomitant]
  10. ZANAMIVIR [Suspect]
     Indication: INFLUENZA VIRUS TEST POSITIVE
     Dosage: 1200MG PER DAY
     Route: 042
  11. MORPHINE [Concomitant]
  12. CLARITHROMYCIN [Concomitant]
  13. MEROPENEM [Concomitant]

REACTIONS (2)
  - MULTI-ORGAN FAILURE [None]
  - RESPIRATORY FAILURE [None]
